FAERS Safety Report 25413013 (Version 1)
Quarter: 2025Q2

REPORT INFORMATION
  Report Type: Spontaneous
  Country: US (occurrence: None)
  Receive Date: 20250607
  Receipt Date: 20250607
  Transmission Date: 20250716
  Serious: Yes (Hospitalization)
  Sender: FDA-CTU
  Company Number: None

PATIENT
  Age: 53 Year
  Sex: Female
  Weight: 116.3 kg

DRUGS (7)
  1. CYCLOPHOSPHAMIDE [Suspect]
     Active Substance: CYCLOPHOSPHAMIDE
  2. CYTARABINE [Suspect]
     Active Substance: CYTARABINE
  3. DOXORUBICIN HYDROCHLORIDE [Suspect]
     Active Substance: DOXORUBICIN HYDROCHLORIDE
  4. MESNA [Suspect]
     Active Substance: MESNA
  5. METHOTREXATE [Suspect]
     Active Substance: METHOTREXATE
  6. PONATINIB [Suspect]
     Active Substance: PONATINIB
  7. VINCRISTINE SULFATE [Suspect]
     Active Substance: VINCRISTINE SULFATE

REACTIONS (5)
  - Chest pain [None]
  - Pain [None]
  - Cardiac flutter [None]
  - Nausea [None]
  - Dyspnoea exertional [None]

NARRATIVE: CASE EVENT DATE: 20250526
